FAERS Safety Report 9148880 (Version 1)
Quarter: 2013Q1

REPORT INFORMATION
  Report Type: Spontaneous
  Country: US (occurrence: None)
  Receive Date: 20130227
  Receipt Date: 20130227
  Transmission Date: 20140127
  Serious: Yes (Disabling)
  Sender: FDA-Public Use
  Company Number: None

PATIENT
  Age: 36 Year
  Sex: Female
  Weight: 70.76 kg

DRUGS (1)
  1. LEVOFLOXACIN [Suspect]
     Dosage: 1 TABLET 1X DAILY PO
     Route: 048
     Dates: start: 20120318, end: 20130323

REACTIONS (4)
  - Fall [None]
  - Abasia [None]
  - Wheelchair user [None]
  - Tendon rupture [None]
